FAERS Safety Report 6260973-1 (Version None)
Quarter: 2009Q3

REPORT INFORMATION
  Report Type: 
  Country: None (occurrence: None)
  Receive Date: 20090709
  Receipt Date: 20090629
  Transmission Date: 20100115
  Serious: Yes (Other)
  Sender: FDA-Public Use
  Company Number: MY-RANBAXY-2009R3-24889

PATIENT

DRUGS (1)
  1. AMLODIPINE [Suspect]
     Indication: ABDOMINAL PAIN UPPER
     Dosage: 5 MG, 1.5 TABLET
     Route: 048

REACTIONS (3)
  - ABDOMINAL PAIN UPPER [None]
  - OFF LABEL USE [None]
  - STEVENS-JOHNSON SYNDROME [None]
